FAERS Safety Report 6125624-5 (Version None)
Quarter: 2009Q1

REPORT INFORMATION
  Report Type: 
  Country: None (occurrence: None)
  Receive Date: 20090319
  Receipt Date: 20090319
  Transmission Date: 20090719
  Serious: Yes (Other)
  Sender: FDA-Public Use
  Company Number: None

PATIENT
  Age: 24 Year
  Sex: Female
  Weight: 117.9352 kg

DRUGS (1)
  1. NUVARING [Suspect]

REACTIONS (6)
  - ABDOMINAL PAIN [None]
  - BREAST TENDERNESS [None]
  - DYSMENORRHOEA [None]
  - MENORRHAGIA [None]
  - MENSTRUAL DISORDER [None]
  - MOOD SWINGS [None]
